FAERS Safety Report 17303274 (Version 1)
Quarter: 2020Q1

REPORT INFORMATION
  Report Type: Spontaneous
  Country: US (occurrence: US)
  Receive Date: 20200122
  Receipt Date: 20200122
  Transmission Date: 20200409
  Serious: No
  Sender: FDA-Public Use
  Company Number: US-SA-2020SA009908

PATIENT
  Sex: Male

DRUGS (2)
  1. SULFAMETHOXAZOLE AND TRIMETHOPRIM [Concomitant]
     Active Substance: SULFAMETHOXAZOLE\TRIMETHOPRIM
     Dosage: UNK
     Dates: start: 20200108
  2. DUPIXENT [Suspect]
     Active Substance: DUPILUMAB
     Dosage: UNK
     Dates: start: 20191125

REACTIONS (12)
  - Skin mass [Unknown]
  - Dermal cyst [Unknown]
  - Unevaluable event [Unknown]
  - Swelling of eyelid [Unknown]
  - Pruritus [Unknown]
  - Ocular hyperaemia [Unknown]
  - Asthma [Unknown]
  - Lymphadenopathy [Unknown]
  - Eczema [Unknown]
  - Dyspnoea [Unknown]
  - Malaise [Unknown]
  - Axillary pain [Unknown]

NARRATIVE: CASE EVENT DATE: 20190108
